FAERS Safety Report 11922823 (Version 2)
Quarter: 2016Q1

REPORT INFORMATION
  Report Type: Spontaneous
  Country: TW (occurrence: TW)
  Receive Date: 20160116
  Receipt Date: 20160118
  Transmission Date: 20160526
  Serious: Yes (Death, Hospitalization, Other)
  Sender: FDA-Public Use
  Company Number: TW-AMGEN-TWNSP2015106624

PATIENT
  Age: 12 Year
  Sex: Female

DRUGS (1)
  1. ENBREL [Suspect]
     Active Substance: ETANERCEPT
     Indication: JUVENILE IDIOPATHIC ARTHRITIS
     Dosage: 25 MG, TWICE PER WEEK
     Route: 058
     Dates: start: 20150617, end: 20151210

REACTIONS (3)
  - Salmonellosis [Not Recovered/Not Resolved]
  - Multiple organ dysfunction syndrome [Fatal]
  - Interstitial lung disease [Fatal]

NARRATIVE: CASE EVENT DATE: 2015
